FAERS Safety Report 6594002-7 (Version None)
Quarter: 2010Q1

REPORT INFORMATION
  Report Type: 
  Country: None (occurrence: None)
  Receive Date: 20100212
  Receipt Date: 20100202
  Transmission Date: 20100710
  Serious: Yes (Life-Threatening, Hospitalization)
  Sender: FDA-Public Use
  Company Number: 2010SCPR000312

PATIENT
  Age: 1 Month
  Weight: 3.2 kg

DRUGS (13)
  1. CAPOTEN [Suspect]
     Indication: CONGENITAL HEART VALVE DISORDER
     Dosage: 3.3 MG, TID, ORAL
     Route: 048
     Dates: start: 20100109, end: 20100124
  2. SPIRONOLACTONE [Concomitant]
  3. AMIODARONE HCL [Concomitant]
  4. BENZYL PENICILLIN /00000901/ (BENZYLPENICILLIN) [Concomitant]
  5. CARNITINE (CARNITINE) [Concomitant]
  6. CHLOROTHIAZIDE [Concomitant]
  7. FLOXACILLIN SODIUM [Concomitant]
  8. FUROSEMIDE [Concomitant]
  9. GENTAMICIN [Concomitant]
  10. MIDAZOLAM HCL [Concomitant]
  11. MILRINONE LACTATE [Concomitant]
  12. MORPHINE SULFATE INJ [Concomitant]
  13. SPIRONOLACTONE [Concomitant]

REACTIONS (1)
  - RENAL IMPAIRMENT [None]
